FAERS Safety Report 10279870 (Version 1)
Quarter: 2014Q3

REPORT INFORMATION
  Report Type: Spontaneous
  Country: None (occurrence: None)
  Receive Date: 20140702
  Receipt Date: 20140702
  Transmission Date: 20150326
  Serious: Yes (Other)
  Sender: FDA-Public Use
  Company Number: TIR-03631

PATIENT
  Age: 41 Year
  Sex: Female

DRUGS (3)
  1. VITAMIN D  /00107901/ (ERGOCALCIFEROL) :UNKNOWN [Concomitant]
  2. LEVOTHYROXINE [Suspect]
     Active Substance: LEVOTHYROXINE
  3. CALCIUM (CALCIUM) [Suspect]
     Active Substance: CALCIUM

REACTIONS (2)
  - Pituitary tumour [None]
  - Drug interaction [None]
